FAERS Safety Report 20676879 (Version 2)
Quarter: 2022Q2

REPORT INFORMATION
  Report Type: Report from Study
  Country: US (occurrence: US)
  Receive Date: 20220406
  Receipt Date: 20220525
  Transmission Date: 20220721
  Serious: Yes (Other)
  Sender: FDA-Public Use
  Company Number: US-BRISTOL-MYERS SQUIBB COMPANY-2022-013715

PATIENT
  Age: 63 Year
  Sex: Female
  Weight: 105 kg

DRUGS (1)
  1. REVLIMID [Suspect]
     Active Substance: LENALIDOMIDE
     Indication: Plasma cell myeloma
     Dates: start: 202104

REACTIONS (4)
  - Diarrhoea [Unknown]
  - Fatigue [Unknown]
  - Drug intolerance [Unknown]
  - Abdominal distension [Unknown]
